FAERS Safety Report 18896411 (Version 1)
Quarter: 2021Q1

REPORT INFORMATION
  Report Type: Spontaneous
  Country: US (occurrence: US)
  Receive Date: 20210215
  Receipt Date: 20210215
  Transmission Date: 20210420
  Serious: No
  Sender: FDA-Public Use
  Company Number: US-ARBOR PHARMACEUTICALS, LLC-US-2020ARB000604

PATIENT
  Age: 40 Year
  Sex: Male
  Weight: 97.51 kg

DRUGS (2)
  1. EDARBYCLOR [Suspect]
     Active Substance: AZILSARTAN KAMEDOXOMIL\CHLORTHALIDONE
     Indication: HYPERTENSION
     Dosage: 40/12.5 MG, EVERY OTHER DAY
     Route: 048
     Dates: start: 2020, end: 20200721
  2. EDARBYCLOR [Suspect]
     Active Substance: AZILSARTAN KAMEDOXOMIL\CHLORTHALIDONE
     Indication: BLOOD PRESSURE MANAGEMENT
     Dosage: 40/12.5 MG, QD
     Route: 048
     Dates: start: 20200526, end: 2020

REACTIONS (3)
  - Insomnia [Recovered/Resolved]
  - Dandruff [Recovered/Resolved]
  - Pain in extremity [Recovered/Resolved]

NARRATIVE: CASE EVENT DATE: 202006
